FAERS Safety Report 5688499-4 (Version None)
Quarter: 2008Q1

REPORT INFORMATION
  Report Type: 
  Country: None (occurrence: None)
  Receive Date: 20080331
  Receipt Date: 20080321
  Transmission Date: 20080703
  Serious: Yes (Disabling, Other)
  Sender: FDA-Public Use
  Company Number: KR-JNJFOC-20080305627

PATIENT
  Age: 50 Year
  Sex: Male

DRUGS (3)
  1. ABCIXIMAB [Suspect]
     Indication: EMBOLISM
     Route: 042
  2. HEPARIN [Concomitant]
     Dosage: 2,500 TO 3,000 UNITS PER HOUR
     Route: 042
  3. HEPARIN [Concomitant]
     Route: 042

REACTIONS (4)
  - BRAIN OEDEMA [None]
  - INTRAVENTRICULAR HAEMORRHAGE [None]
  - SUBARACHNOID HAEMORRHAGE [None]
  - THROMBOCYTOPENIA [None]
